FAERS Safety Report 14803243 (Version 1)
Quarter: 2018Q2

REPORT INFORMATION
  Report Type: Report from Study
  Country: DE (occurrence: DE)
  Receive Date: 20180425
  Receipt Date: 20180425
  Transmission Date: 20180711
  Serious: Yes (Other)
  Sender: FDA-Public Use
  Company Number: DE-ROCHE-1804879

PATIENT
  Age: 67 Year
  Sex: Female

DRUGS (1)
  1. BEVACIZUMAB. [Suspect]
     Active Substance: BEVACIZUMAB
     Indication: OVARIAN CANCER
     Route: 042
     Dates: start: 20130103

REACTIONS (25)
  - Thrombocytopenia [Recovered/Resolved]
  - Angina pectoris [Recovered/Resolved]
  - Anaemia [Unknown]
  - Renal failure [Unknown]
  - Alopecia [Recovered/Resolved]
  - Conjunctivitis [Recovered/Resolved]
  - Paraesthesia [Recovered/Resolved]
  - Tachycardia [Recovered/Resolved]
  - Blood creatinine increased [Not Recovered/Not Resolved]
  - Vomiting [Unknown]
  - Fatigue [Unknown]
  - Hyperkalaemia [Recovered/Resolved]
  - Fistula [Unknown]
  - Thrombocytopenia [Unknown]
  - Impaired healing [Recovered/Resolved]
  - Inflammation [Not Recovered/Not Resolved]
  - Cystitis [Unknown]
  - Impaired healing [Unknown]
  - Epistaxis [Recovered/Resolved]
  - Diarrhoea [Recovered/Resolved]
  - Dyspnoea [Not Recovered/Not Resolved]
  - Anaemia [Unknown]
  - Dyspnoea exertional [Unknown]
  - Nausea [Recovered/Resolved]
  - Vomiting [Recovered/Resolved]

NARRATIVE: CASE EVENT DATE: 20130103
